FAERS Safety Report 20305489 (Version 1)
Quarter: 2022Q1

REPORT INFORMATION
  Report Type: Spontaneous
  Country: US (occurrence: US)
  Receive Date: 20220106
  Receipt Date: 20220106
  Transmission Date: 20220423
  Serious: No
  Sender: FDA-Public Use
  Company Number: US-AMNEAL PHARMACEUTICALS-2021-AMRX-00487

PATIENT
  Age: 48 Year
  Sex: Female
  Weight: 85.1 kg

DRUGS (13)
  1. ACTIVELLA [Suspect]
     Active Substance: ESTRADIOL\NORETHINDRONE ACETATE
     Indication: Uterine leiomyoma
     Dosage: 1 DOSAGE FORM
     Route: 048
     Dates: start: 20181217, end: 20191118
  2. ACTIVELLA [Suspect]
     Active Substance: ESTRADIOL\NORETHINDRONE ACETATE
     Dosage: 1 DOSAGE FORM, DAILY
     Route: 048
     Dates: start: 20191118, end: 20200527
  3. ELAGOLIX [Suspect]
     Active Substance: ELAGOLIX
     Indication: Uterine leiomyoma
     Dosage: 2 DOSAGE FORM, DAILY, AM AND PM
     Route: 048
     Dates: start: 20181217, end: 20191118
  4. ELAGOLIX [Suspect]
     Active Substance: ELAGOLIX
     Dosage: 2 DOSAGE FORM, DAILY, AM AND PM
     Route: 048
     Dates: start: 20191118, end: 20200527
  5. IRON [Concomitant]
     Active Substance: IRON
     Indication: Anaemia
     Dosage: 1 TABLETS, DAILY
     Route: 048
     Dates: start: 2010
  6. ZYRTEC [Concomitant]
     Active Substance: CETIRIZINE HYDROCHLORIDE
     Indication: Seasonal allergy
     Dosage: 10 MILLIGRAM, AS REQUIRED
     Route: 048
     Dates: start: 2017
  7. FLONASE [Concomitant]
     Active Substance: FLUTICASONE PROPIONATE
     Indication: Sinusitis
     Dosage: 2 PUFF, DAILY
     Route: 045
     Dates: start: 20190814, end: 20190819
  8. CALCIUM [Concomitant]
     Active Substance: CALCIUM
     Indication: Product used for unknown indication
     Dosage: 1 DOSAGE FORM, DAILY
     Route: 048
     Dates: start: 20200529
  9. CHOLECALCIFEROL [Concomitant]
     Active Substance: CHOLECALCIFEROL
     Indication: Vitamin D deficiency
     Dosage: 1000 MILLIGRAM, DAILY
     Route: 048
     Dates: start: 20200529
  10. CLONAZEPAM [Concomitant]
     Active Substance: CLONAZEPAM
     Indication: Temporomandibular joint syndrome
     Dosage: 0.5 MILLIGRAM, AS REQUIRED
     Route: 048
     Dates: start: 20200601
  11. DIETHYLPROPION HYDROCHLORIDE [Concomitant]
     Active Substance: DIETHYLPROPION HYDROCHLORIDE
     Indication: Obesity
     Dosage: 25 MILLIGRAM, DAILY
     Route: 048
     Dates: start: 20200601
  12. NAPROXEN [Concomitant]
     Active Substance: NAPROXEN
     Indication: Temporomandibular joint syndrome
     Dosage: 500 MILLIGRAM, 2X/DAY
     Route: 048
     Dates: start: 20200601
  13. TENUATE [Concomitant]
     Active Substance: DIETHYLPROPION HYDROCHLORIDE
     Indication: Obesity
     Dosage: 75 MILLIGRAM, DAILY
     Route: 048
     Dates: start: 20200601

REACTIONS (2)
  - Bone density decreased [Not Recovered/Not Resolved]
  - Depression [Not Recovered/Not Resolved]

NARRATIVE: CASE EVENT DATE: 20200501
